FAERS Safety Report 5642488-4 (Version None)
Quarter: 2008Q1

REPORT INFORMATION
  Report Type: 
  Country: None (occurrence: None)
  Receive Date: 20080226
  Receipt Date: 20080215
  Transmission Date: 20080703
  Serious: Yes (Other)
  Sender: FDA-Public Use
  Company Number: 2007-00656

PATIENT
  Age: 70 Year
  Sex: Male
  Weight: 77 kg

DRUGS (2)
  1. VELCADE [Suspect]
     Indication: MYELODYSPLASTIC SYNDROME
     Dosage: 2.47 MG, INTRAVENOUS
     Route: 042
     Dates: start: 20070131, end: 20070206
  2. CYTARABINE [Suspect]
     Indication: MYELODYSPLASTIC SYNDROME
     Dosage: 38.00 MG, SUBCUTANEOUS
     Route: 058
     Dates: start: 20070131, end: 20070207

REACTIONS (2)
  - EYELID OEDEMA [None]
  - RASH GENERALISED [None]
